FAERS Safety Report 15188315 (Version 2)
Quarter: 2018Q3

REPORT INFORMATION
  Report Type: Report from Study
  Country: DE (occurrence: DE)
  Receive Date: 20180724
  Receipt Date: 20180928
  Transmission Date: 20181010
  Serious: Yes (Other)
  Sender: FDA-Public Use
  Company Number: DE-ELI_LILLY_AND_COMPANY-DE201807003696

PATIENT
  Age: 41 Year
  Sex: Male
  Weight: 85 kg

DRUGS (27)
  1. OLARATUMAB [Suspect]
     Active Substance: OLARATUMAB
     Indication: SOFT TISSUE SARCOMA
     Dosage: 1350 MG; D1 AND D8 OF 21 DAY CYCLE
     Route: 042
     Dates: start: 20180417
  2. CLEMASTINE [Concomitant]
     Active Substance: CLEMASTINE
     Indication: PRODUCT USED FOR UNKNOWN INDICATION
     Dosage: DOSAGE FORM: UNSPECIFIED
     Route: 065
     Dates: start: 20180417
  3. OXYCODONE [Concomitant]
     Active Substance: OXYCODONE
     Dosage: DOSAGE FORM: UNSPECIFIED
     Route: 065
     Dates: start: 20180416
  4. NATRIUMPICOSULFAT [Concomitant]
     Dosage: DOSAGE FORM: UNSPECIFIED
     Route: 065
     Dates: start: 20180417
  5. DEXRAZOXANE. [Concomitant]
     Active Substance: DEXRAZOXANE
     Indication: SARCOMA
     Dosage: DOSAGE FORM: UNSPECIFIED
     Route: 065
     Dates: start: 20180417
  6. NOVALGIN                           /00169801/ [Concomitant]
     Active Substance: ACETAMINOPHEN\CAFFEINE\PROPYPHENAZONE
     Dosage: DOSAGE FORM: UNSPECIFIED
     Route: 065
     Dates: start: 20180417
  7. MACROGOL [Concomitant]
     Active Substance: POLYETHYLENE GLYCOLS
     Dosage: DOSAGE FORM: UNSPECIFIED
     Route: 065
     Dates: start: 20180417
  8. DOXORUBICIN [Suspect]
     Active Substance: DOXORUBICIN
     Dosage: 25 MG/M2, UNKNOWN
     Route: 042
     Dates: start: 20180508
  9. MESNA. [Suspect]
     Active Substance: MESNA
     Indication: SOFT TISSUE SARCOMA
     Dosage: 6370 MG, CYCLICAL (ALSO REPORTED AS: 5400 MG; D1 AND D8 OF 21 DAY CYCLE)
     Route: 042
     Dates: start: 20180417
  10. NEUPOGEN [Concomitant]
     Active Substance: FILGRASTIM
     Dosage: DOSAGE FORM: UNSPECIFIED
     Route: 065
     Dates: start: 20180417
  11. AMPHO MORONAL [Concomitant]
     Active Substance: AMPHOTERICIN B
     Dosage: DOSAGE FORM: UNSPECIFIED
     Route: 065
     Dates: start: 20180417
  12. MOVENTIG [Concomitant]
     Active Substance: NALOXEGOL OXALATE
     Dosage: DOSAGE FORM: UNSPECIFIED
     Route: 065
     Dates: start: 20180419
  13. PANTOPRAZOL                        /01263201/ [Concomitant]
     Active Substance: PANTOPRAZOLE
     Dosage: DOSAGE FORM: UNSPECIFIED
     Route: 065
     Dates: start: 20180417
  14. IDEOS [Concomitant]
     Active Substance: CALCIUM CARBONATE\CHOLECALCIFEROL
     Dosage: DOSAGE FORM: UNSPECIFIED
     Route: 065
     Dates: start: 20180418
  15. IFOSFAMIDE. [Suspect]
     Active Substance: IFOSFAMIDE
     Indication: SOFT TISSUE SARCOMA
     Dosage: 5400 MG; D1 AND D8 OF 21 DAY CYCLE
     Route: 042
     Dates: start: 20180417, end: 20180418
  16. FUROSEMIDE. [Concomitant]
     Active Substance: FUROSEMIDE
     Indication: PRODUCT USED FOR UNKNOWN INDICATION
     Dosage: DOSAGE FORM: UNSPECIFIED
     Route: 065
     Dates: start: 20180417
  17. HYDROMORPHONE [Concomitant]
     Active Substance: HYDROMORPHONE
     Indication: PRODUCT USED FOR UNKNOWN INDICATION
     Dosage: DOSAGE FORM: UNSPECIFIED
     Route: 065
     Dates: start: 20180417
  18. PIRACETAM [Concomitant]
     Active Substance: PIRACETAM
     Dosage: DOSAGE FORM: UNSPECIFIED
     Route: 065
     Dates: start: 20180417
  19. DOXORUBICIN [Suspect]
     Active Substance: DOXORUBICIN
     Indication: SOFT TISSUE SARCOMA
     Dosage: 25 MG/M2, UNKNOWN
     Route: 042
     Dates: start: 20180417, end: 20180418
  20. IFOSFAMIDE. [Suspect]
     Active Substance: IFOSFAMIDE
     Dosage: 5400 MG; D1 AND D8 OF 21 DAY CYCLE
     Route: 042
     Dates: start: 20180508
  21. CALCIUM VITAMIN D [Concomitant]
     Active Substance: CALCIUM\VITAMIN D
     Dosage: DOSAGE FORM: UNSPECIFIED
     Route: 065
     Dates: start: 20180417
  22. METOCLOPRAMIDE. [Concomitant]
     Active Substance: METOCLOPRAMIDE
     Dosage: DOSAGE FORM: UNSPECIFIED
     Route: 065
     Dates: start: 20180417
  23. DEXAMETHASONE. [Concomitant]
     Active Substance: DEXAMETHASONE
     Dosage: DOSAGE FORM: UNSPECIFIED
     Route: 065
     Dates: start: 20180417
  24. ALIZAPRIDE [Concomitant]
     Active Substance: ALIZAPRIDE
     Dosage: DOSAGE FORM: UNSPECIFIED
     Route: 065
     Dates: start: 20180417
  25. ZOMETA [Concomitant]
     Active Substance: ZOLEDRONIC ACID
     Dosage: DOSAGE FORM: UNSPECIFIED
     Route: 065
     Dates: start: 201801
  26. ONDANSETRON [Concomitant]
     Active Substance: ONDANSETRON
     Dosage: DOSAGE FORM: UNSPECIFIED
     Route: 065
     Dates: start: 20180417
  27. METHOCARBAMOL. [Concomitant]
     Active Substance: METHOCARBAMOL
     Dosage: DOSAGE FORM: UNSPECIFIED
     Route: 065
     Dates: start: 20180417

REACTIONS (2)
  - Febrile neutropenia [Not Recovered/Not Resolved]
  - Off label use [Unknown]

NARRATIVE: CASE EVENT DATE: 20180607
